FAERS Safety Report 13858358 (Version 5)
Quarter: 2019Q1

REPORT INFORMATION
  Report Type: Report from Study
  Country: US (occurrence: US)
  Receive Date: 20170811
  Receipt Date: 20190131
  Transmission Date: 20190417
  Serious: No
  Sender: FDA-Public Use
  Company Number: PHEH2017US025312

PATIENT
  Sex: Female
  Weight: 78.91 kg

DRUGS (1)
  1. GILENYA [Suspect]
     Active Substance: FINGOLIMOD HYDROCHLORIDE
     Indication: MULTIPLE SCLEROSIS
     Dosage: 0.5 MG, QD
     Route: 048
     Dates: start: 20170718

REACTIONS (6)
  - Panic disorder [Unknown]
  - Memory impairment [Unknown]
  - Tinnitus [Unknown]
  - Asthenopia [Unknown]
  - Yawning [Unknown]
  - Malaise [Unknown]
